FAERS Safety Report 6584594-6 (Version None)
Quarter: 2010Q1

REPORT INFORMATION
  Report Type: 
  Country: None (occurrence: None)
  Receive Date: 20100213
  Receipt Date: 20100213
  Transmission Date: 20100710
  Serious: No
  Sender: FDA-Public Use
  Company Number: None

PATIENT

DRUGS (1)
  1. METFORMIN HCL [Suspect]

REACTIONS (3)
  - DIZZINESS [None]
  - LOWER RESPIRATORY TRACT INFECTION [None]
  - VOMITING [None]
